FAERS Safety Report 7267269-X (Version None)
Quarter: 2011Q1

REPORT INFORMATION
  Report Type: 
  Country: None (occurrence: None)
  Receive Date: 20110201
  Receipt Date: 20110121
  Transmission Date: 20110831
  Serious: Yes (Other)
  Sender: FDA-Public Use
  Company Number: IE-BAXTER-2011BH001856

PATIENT
  Age: 51 Year
  Sex: Female

DRUGS (1)
  1. HUMAN ALBUMIN IMMUNO 4.5% [Suspect]
     Indication: PRODUCT USED FOR UNKNOWN INDICATION
     Route: 042
     Dates: start: 20000101, end: 20000101

REACTIONS (1)
  - HEPATITIS C [None]
